FAERS Safety Report 4851793-0 (Version None)
Quarter: 2005Q4

REPORT INFORMATION
  Report Type: 
  Country: None (occurrence: None)
  Receive Date: 20051209
  Receipt Date: 20051128
  Transmission Date: 20060501
  Serious: Yes (Other)
  Sender: FDA-Public Use
  Company Number: 2005141760

PATIENT
  Age: 8 Year
  Sex: Female

DRUGS (2)
  1. ZARONTIN [Suspect]
     Indication: EPILEPSY
     Dosage: (250 MG), ORAL
     Route: 048
     Dates: start: 20020301, end: 20051123
  2. GARDENALE (PHENOBARBITAL SODIUM) [Concomitant]

REACTIONS (2)
  - CONVULSION [None]
  - TREATMENT NONCOMPLIANCE [None]
